FAERS Safety Report 19824339 (Version 1)
Quarter: 2021Q3

REPORT INFORMATION
  Report Type: Spontaneous
  Country: US (occurrence: US)
  Receive Date: 20210913
  Receipt Date: 20210913
  Transmission Date: 20211014
  Serious: No
  Sender: FDA-Public Use
  Company Number: US-PERRIGO-20US016600

PATIENT
  Age: 77 Year
  Sex: Male
  Weight: 108.84 kg

DRUGS (2)
  1. TESTOSTERONE. [Suspect]
     Active Substance: TESTOSTERONE
     Indication: BLOOD TESTOSTERONE DECREASED
     Dosage: 40.5 MG, QD
     Route: 061
     Dates: start: 20201003, end: 20201111
  2. TESTOSTERONE. [Suspect]
     Active Substance: TESTOSTERONE
     Dosage: UNKNOWN, SINGLE
     Route: 061
     Dates: start: 20201112, end: 20201112

REACTIONS (2)
  - Device delivery system issue [Unknown]
  - Incorrect dose administered [Recovered/Resolved]

NARRATIVE: CASE EVENT DATE: 20201103
